FAERS Safety Report 8578497-5 (Version None)
Quarter: 2012Q3

REPORT INFORMATION
  Report Type: 
  Country: None (occurrence: None)
  Receive Date: 20120808
  Receipt Date: 20120726
  Transmission Date: 20120928
  Serious: Yes (Other)
  Sender: FDA-Public Use
  Company Number: FR-CELGENEUS-056-21880-12020766

PATIENT
  Sex: Male

DRUGS (22)
  1. ELOTUZUMAB [Suspect]
     Indication: MULTIPLE MYELOMA
     Dosage: 760 MILLIGRAM
     Route: 041
     Dates: start: 20111213, end: 20120131
  2. REVLIMID [Suspect]
     Indication: MULTIPLE MYELOMA
     Dosage: 25 MILLIGRAM
     Route: 048
     Dates: start: 20111213, end: 20120130
  3. TRIMETHOPRIM [Concomitant]
     Route: 065
     Dates: start: 20111110
  4. BUMETANIDE [Concomitant]
     Route: 065
     Dates: start: 20111129
  5. IMOVANE [Concomitant]
     Route: 065
     Dates: start: 20111129
  6. LYRICA [Concomitant]
     Route: 065
     Dates: start: 20111129
  7. OXYCODONE HYDROCHLORIDE [Concomitant]
     Route: 065
     Dates: start: 20111129
  8. DEXAMETHASONE [Suspect]
     Dosage: 8 MILLIGRAM
     Route: 041
     Dates: start: 20111213, end: 20120130
  9. ALBUTEROL SULATE [Concomitant]
     Route: 065
     Dates: start: 20111205
  10. DEXAMETHASONE [Suspect]
     Dosage: 40 MILLIGRAM
     Route: 048
     Dates: start: 20120606, end: 20120620
  11. ELOTUZUMAB [Suspect]
     Dosage: 840 MILLIGRAM
     Route: 041
     Dates: start: 20111213
  12. ELOTUZUMAB [Suspect]
     Dosage: 830 MILLIGRAM
     Route: 041
     Dates: start: 20111213
  13. PREVISCAN [Concomitant]
     Route: 065
     Dates: start: 20111129
  14. ECONAZOL [Concomitant]
     Route: 065
     Dates: start: 20111210
  15. PHENOXYMETHYL PENICILLIN [Concomitant]
     Route: 065
     Dates: start: 20111110
  16. DEXAMETHASONE [Suspect]
     Indication: MULTIPLE MYELOMA
     Dosage: 28 MILLIGRAM
     Route: 048
     Dates: start: 20111213, end: 20111201
  17. TRANSIPEG [Concomitant]
     Route: 065
     Dates: start: 20111213
  18. VALACYCLOVIR HYDROCHLORIDE [Concomitant]
     Route: 065
     Dates: start: 20111110
  19. LEUCOVORIN CALCIUM [Concomitant]
     Route: 065
     Dates: start: 20111110
  20. DILTIAZEM HCL [Concomitant]
     Route: 065
     Dates: start: 20111129
  21. OXYCONTIN [Concomitant]
     Route: 065
     Dates: start: 20111129
  22. POTASSIUM CHLORIDE [Concomitant]
     Route: 065
     Dates: start: 20111213

REACTIONS (2)
  - OVERDOSE [None]
  - CHRONIC LYMPHOCYTIC LEUKAEMIA [None]
